FAERS Safety Report 24970766 (Version 1)
Quarter: 2025Q1

REPORT INFORMATION
  Report Type: Spontaneous
  Country: FR (occurrence: None)
  Receive Date: 20250214
  Receipt Date: 20250214
  Transmission Date: 20250408
  Serious: Yes (Life-Threatening)
  Sender: ORION
  Company Number: None

PATIENT
  Age: 83 Year
  Sex: Male

DRUGS (1)
  1. METHOTREXATE [Suspect]
     Active Substance: METHOTREXATE
     Indication: Psoriatic arthropathy
     Dates: start: 2020, end: 20240507

REACTIONS (2)
  - Pancytopenia [Recovering/Resolving]
  - Oral disorder [Unknown]

NARRATIVE: CASE EVENT DATE: 20240506
